FAERS Safety Report 7253700-2 (Version None)
Quarter: 2011Q1

REPORT INFORMATION
  Report Type: 
  Country: None (occurrence: None)
  Receive Date: 20110129
  Receipt Date: 20100128
  Transmission Date: 20110831
  Serious: No
  Sender: FDA-Public Use
  Company Number: US-ABBOTT-10P-163-0623050-00

PATIENT
  Age: 54 Year
  Sex: Female
  Weight: 75.818 kg

DRUGS (1)
  1. HUMIRA [Suspect]
     Indication: RHEUMATOID ARTHRITIS
     Dates: start: 20091126, end: 20100127

REACTIONS (7)
  - RASH MACULAR [None]
  - INJECTION SITE PRURITUS [None]
  - INJECTION SITE SWELLING [None]
  - INJECTION SITE PAIN [None]
  - BLISTER [None]
  - INJECTION SITE ERYTHEMA [None]
  - RASH [None]
